FAERS Safety Report 10159292 (Version 1)
Quarter: 2014Q2

REPORT INFORMATION
  Report Type: Spontaneous
  Country: US (occurrence: None)
  Receive Date: 20140506
  Receipt Date: 20140506
  Transmission Date: 20141212
  Serious: Yes (Other)
  Sender: FDA-Public Use
  Company Number: FK201401569

PATIENT
  Age: 45 Year
  Sex: Female

DRUGS (1)
  1. CYANOCOBALAMIN INJECTION, USP (CYANOCOBALAMIN) (CYANOCOBALAMIN) [Suspect]
     Indication: PERNICIOUS ANAEMIA
     Route: 030
     Dates: start: 1999, end: 20140415

REACTIONS (4)
  - Rash pruritic [None]
  - Urticaria [None]
  - Generalised erythema [None]
  - Cough [None]
